FAERS Safety Report 12733557 (Version 1)
Quarter: 2016Q3

REPORT INFORMATION
  Report Type: Spontaneous
  Country: CN (occurrence: CN)
  Receive Date: 20160912
  Receipt Date: 20160912
  Transmission Date: 20161109
  Serious: Yes (Hospitalization)
  Sender: FDA-Public Use
  Company Number: PHHY2016CN124711

PATIENT
  Age: 72 Year
  Sex: Female

DRUGS (1)
  1. ZOLEDRONIC ACID [Suspect]
     Active Substance: ZOLEDRONIC ACID
     Indication: METASTASES TO BONE
     Dosage: 4 MG, QMO
     Route: 042
     Dates: start: 201404

REACTIONS (7)
  - Gingival swelling [Recovered/Resolved]
  - Oral cavity fistula [Recovered/Resolved]
  - Osteomyelitis [Recovered/Resolved]
  - Exposed bone in jaw [Recovered/Resolved]
  - Wound [Recovered/Resolved]
  - Purulent discharge [Recovered/Resolved]
  - Osteonecrosis of jaw [Recovered/Resolved]
